FAERS Safety Report 20080336 (Version 1)
Quarter: 2021Q4

REPORT INFORMATION
  Report Type: Spontaneous
  Country: CZ (occurrence: CZ)
  Receive Date: 20211117
  Receipt Date: 20211117
  Transmission Date: 20220303
  Serious: Yes (Other)
  Sender: FDA-Public Use
  Company Number: CZ-PFIZER INC-202101510962

PATIENT
  Sex: Female

DRUGS (10)
  1. DOXORUBICIN HYDROCHLORIDE [Suspect]
     Active Substance: DOXORUBICIN HYDROCHLORIDE
     Indication: Marginal zone lymphoma
     Dosage: 4 CYCLES
     Dates: start: 201903
  2. DOXORUBICIN HYDROCHLORIDE [Suspect]
     Active Substance: DOXORUBICIN HYDROCHLORIDE
     Dosage: 5TH AND 6TH CHEMOTHERAPEUTIC CYCLES WERE REDUCED TO 75% OF THE ORIGINAL DOSE
     Dates: end: 201907
  3. MABTHERA [Suspect]
     Active Substance: RITUXIMAB
     Indication: Marginal zone lymphoma
     Dosage: 4 CYCLES
     Dates: start: 201903
  4. MABTHERA [Suspect]
     Active Substance: RITUXIMAB
     Dosage: 5TH AND 6TH CHEMOTHERAPEUTIC CYCLES WERE REDUCED TO 75% OF THE ORIGINAL DOSE
     Dates: end: 201907
  5. CYCLOPHOSPHAMIDE [Suspect]
     Active Substance: CYCLOPHOSPHAMIDE
     Indication: Marginal zone lymphoma
     Dosage: 4 CYCLES
     Dates: start: 201903
  6. CYCLOPHOSPHAMIDE [Suspect]
     Active Substance: CYCLOPHOSPHAMIDE
     Dosage: 5TH AND 6TH CHEMOTHERAPEUTIC CYCLES WERE REDUCED TO 75% OF THE ORIGINAL DOSE
     Dates: end: 201907
  7. VINCRISTINE [Suspect]
     Active Substance: VINCRISTINE
     Indication: Marginal zone lymphoma
     Dosage: 4 CYCLES
     Dates: start: 201903
  8. VINCRISTINE [Suspect]
     Active Substance: VINCRISTINE
     Dosage: 5TH AND 6TH CHEMOTHERAPEUTIC CYCLES WERE REDUCED TO 75% OF THE ORIGINAL DOSE
     Dates: end: 201907
  9. PREDNISONE [Suspect]
     Active Substance: PREDNISONE
     Indication: Marginal zone lymphoma
     Dosage: 4 CYCLES
     Dates: start: 201903
  10. PREDNISONE [Suspect]
     Active Substance: PREDNISONE
     Dosage: 5TH AND 6TH CHEMOTHERAPEUTIC CYCLES WERE REDUCED TO 75% OF THE ORIGINAL DOSE
     Dates: end: 201907

REACTIONS (4)
  - Cytopenia [Not Recovered/Not Resolved]
  - Tremor [Recovering/Resolving]
  - Nausea [Unknown]
  - Vomiting [Unknown]

NARRATIVE: CASE EVENT DATE: 20190101
